FAERS Safety Report 12417837 (Version 3)
Quarter: 2016Q3

REPORT INFORMATION
  Report Type: Spontaneous
  Country: US (occurrence: US)
  Receive Date: 20160531
  Receipt Date: 20160927
  Transmission Date: 20161109
  Serious: Yes (Other)
  Sender: FDA-Public Use
  Company Number: US-JNJFOC-20160518011

PATIENT
  Age: 48 Year
  Sex: Male
  Weight: 63.5 kg

DRUGS (1)
  1. LISTERINE COOL MINT ANTISEPTIC [Suspect]
     Active Substance: EUCALYPTOL\MENTHOL\METHYL SALICYLATE\THYMOL
     Indication: DENTAL DISORDER PROPHYLAXIS
     Dosage: MOUTH FULL, TWICE DAILY. EVERY MORNING AND EVENING (RINSED FOR 5-10 SECONDS THEN SPIT THE PRODUCT)
     Route: 048
     Dates: start: 20160413, end: 20160421

REACTIONS (42)
  - Trigeminal neuralgia [Not Recovered/Not Resolved]
  - Tongue dry [Not Recovered/Not Resolved]
  - Toothache [None]
  - Facial pain [None]
  - Drug ineffective [None]
  - Epistaxis [None]
  - Somnolence [None]
  - Haematocrit decreased [None]
  - Gait disturbance [None]
  - Neutrophil count increased [None]
  - Blood sodium decreased [None]
  - Chronic sinusitis [None]
  - Lymphadenopathy [None]
  - Insomnia [Not Recovered/Not Resolved]
  - Swollen tongue [Not Recovered/Not Resolved]
  - Application site dryness [None]
  - Speech disorder [None]
  - Vomiting [None]
  - Hypersensitivity [None]
  - Haemoglobin decreased [None]
  - Application site fissure [None]
  - Application site scab [Not Recovered/Not Resolved]
  - Application site discomfort [None]
  - Salivary gland disorder [None]
  - Ageusia [Not Recovered/Not Resolved]
  - Feeding disorder [None]
  - Diarrhoea [None]
  - Lymphocyte count decreased [None]
  - Headache [None]
  - Tongue ulceration [Not Recovered/Not Resolved]
  - Nausea [None]
  - Blood pressure diastolic increased [None]
  - Blood calcium decreased [None]
  - Blood chloride decreased [None]
  - Mean platelet volume decreased [None]
  - Red blood cell count decreased [None]
  - Vertigo [None]
  - Tongue disorder [Not Recovered/Not Resolved]
  - Application site induration [None]
  - Application site pain [None]
  - Application site swelling [None]
  - Dizziness [None]

NARRATIVE: CASE EVENT DATE: 2016
